FAERS Safety Report 5856594-2 (Version None)
Quarter: 2008Q3

REPORT INFORMATION
  Report Type: 
  Country: None (occurrence: None)
  Receive Date: 20080825
  Receipt Date: 20080819
  Transmission Date: 20090109
  Serious: Yes (Hospitalization)
  Sender: FDA-Public Use
  Company Number: US-MERCK-0808USA02115

PATIENT
  Age: 41 Year
  Sex: Male

DRUGS (5)
  1. HYZAAR [Suspect]
     Indication: HYPERTENSION
     Route: 048
     Dates: end: 20080805
  2. MAXALT-MLT [Concomitant]
     Route: 048
  3. CYANOCOBALAMIN [Concomitant]
     Route: 065
  4. KLONOPIN [Concomitant]
     Route: 065
  5. ACIPHEX [Concomitant]
     Route: 065

REACTIONS (8)
  - HYPERHIDROSIS [None]
  - MUSCLE RIGIDITY [None]
  - MUSCLE SPASMS [None]
  - MUSCULOSKELETAL DISCOMFORT [None]
  - MYALGIA [None]
  - NAUSEA [None]
  - RENAL DISORDER [None]
  - WEIGHT DECREASED [None]
